FAERS Safety Report 4533487-4 (Version None)
Quarter: 2004Q4

REPORT INFORMATION
  Report Type: 
  Country: None (occurrence: None)
  Receive Date: 20041221
  Receipt Date: 20041103
  Transmission Date: 20050328
  Serious: Yes (Hospitalization)
  Sender: FDA-Public Use
  Company Number: DE-MERCK-0411DEU00083

PATIENT
  Age: 52 Year
  Sex: Female
  Weight: 58 kg

DRUGS (3)
  1. VIOXX [Suspect]
     Indication: BONE PAIN
     Route: 048
     Dates: start: 20010601
  2. VIOXX [Suspect]
     Indication: ARTHRALGIA
     Route: 048
     Dates: start: 20010601
  3. METOPROLOL [Concomitant]
     Indication: TACHYCARDIA
     Route: 048
     Dates: start: 20000101

REACTIONS (12)
  - ANGINA PECTORIS [None]
  - BLOOD PRESSURE INCREASED [None]
  - CORONARY ARTERY OCCLUSION [None]
  - CORONARY ARTERY THROMBOSIS [None]
  - DIZZINESS [None]
  - HEADACHE [None]
  - HYPOAESTHESIA [None]
  - MYOCARDIAL INFARCTION [None]
  - NAUSEA [None]
  - POST PROCEDURAL COMPLICATION [None]
  - VENTRICULAR DYSKINESIA [None]
  - VOMITING [None]
